FAERS Safety Report 7227864-0 (Version None)
Quarter: 2011Q1

REPORT INFORMATION
  Report Type: 
  Country: None (occurrence: None)
  Receive Date: 20110114
  Receipt Date: 20110107
  Transmission Date: 20110831
  Serious: Yes (Hospitalization, Other)
  Sender: FDA-Public Use
  Company Number: US-MERCK-0706USA01996

PATIENT
  Age: 48 Year
  Sex: Male
  Weight: 96 kg

DRUGS (11)
  1. DOXAZOSIN MESYLATE [Concomitant]
     Indication: HYPERTENSION
     Route: 065
     Dates: start: 20010101
  2. PREDNISONE [Suspect]
     Indication: FIBROMYALGIA
     Route: 065
     Dates: start: 19950101
  3. FOSAMAX [Suspect]
     Indication: OSTEOPENIA
     Route: 048
     Dates: start: 20031110, end: 20060101
  4. ORPHENADRINE CITRATE [Concomitant]
     Indication: FIBROMYALGIA
     Route: 065
     Dates: start: 20001001, end: 20070201
  5. ALLEGRA [Concomitant]
     Indication: ASTHMA
     Route: 065
     Dates: start: 20001001, end: 20060101
  6. FOSAMAX [Suspect]
     Route: 048
     Dates: start: 20011201, end: 20021101
  7. FOSAMAX [Suspect]
     Indication: OSTEOPOROSIS
     Route: 048
     Dates: start: 20031110, end: 20060101
  8. ALLEGRA [Concomitant]
     Indication: HYPERSENSITIVITY
     Route: 065
     Dates: start: 20001001, end: 20060101
  9. AMITRIPTYLINE HYDROCHLORIDE [Concomitant]
     Indication: FIBROMYALGIA
     Route: 065
     Dates: start: 20010101
  10. LIPITOR [Concomitant]
     Indication: BLOOD CHOLESTEROL INCREASED
     Route: 065
     Dates: start: 20001001, end: 20060901
  11. FOSAMAX [Suspect]
     Route: 048
     Dates: start: 20011201, end: 20021101

REACTIONS (18)
  - TOOTH IMPACTED [None]
  - ABSCESS JAW [None]
  - ARTHRITIS [None]
  - CHRONIC SINUSITIS [None]
  - VENOUS THROMBOSIS LIMB [None]
  - ARTHROPATHY [None]
  - TOOTH INFECTION [None]
  - DENTAL FISTULA [None]
  - RECTAL PROLAPSE [None]
  - TOOTH DISORDER [None]
  - ANXIETY [None]
  - TOOTHACHE [None]
  - HYPOAESTHESIA [None]
  - OROANTRAL FISTULA [None]
  - OSTEONECROSIS OF JAW [None]
  - ADVERSE DRUG REACTION [None]
  - DENTAL CARIES [None]
  - DEPRESSION [None]
